FAERS Safety Report 8318635-2 (Version None)
Quarter: 2012Q2

REPORT INFORMATION
  Report Type: 
  Country: None (occurrence: None)
  Receive Date: 20120427
  Receipt Date: 20090812
  Transmission Date: 20120825
  Serious: No
  Sender: FDA-Public Use
  Company Number: US-TEVA-2009009570

PATIENT
  Sex: Female

DRUGS (17)
  1. NUVIGIL [Suspect]
     Route: 048
     Dates: start: 20090810, end: 20090811
  2. CYMBALTA [Concomitant]
     Dates: start: 20060101
  3. DYAZIDE [Concomitant]
     Dates: start: 20090301
  4. PRILOSEC [Concomitant]
  5. REGLAN [Concomitant]
  6. AMARYL [Concomitant]
     Dates: start: 20080901
  7. IMITREX [Concomitant]
     Dates: start: 20070101
  8. LOPRESSOR [Concomitant]
     Dates: start: 20090501
  9. MIRALAX OTC [Concomitant]
     Dates: start: 20090301
  10. NUVIGIL [Suspect]
     Indication: FATIGUE
     Dosage: 150 MILLIGRAM;
     Route: 048
     Dates: start: 20090501, end: 20090809
  11. MORPHINE SULFATE [Concomitant]
     Dates: start: 20090201
  12. LIDODERM [Concomitant]
     Dates: start: 20080101
  13. ABILIFY [Concomitant]
     Dates: start: 20090201
  14. VIVELLE [Concomitant]
     Dates: start: 20090601
  15. AMITIZA [Concomitant]
     Dates: start: 20090201
  16. POTASSIUM SR [Concomitant]
     Dates: start: 20080101
  17. XANAX [Concomitant]
     Dates: start: 20080901

REACTIONS (2)
  - INTENTIONAL DRUG MISUSE [None]
  - INSOMNIA [None]
